FAERS Safety Report 10591219 (Version 4)
Quarter: 2015Q2

REPORT INFORMATION
  Report Type: Report from Study
  Country: US (occurrence: US)
  Receive Date: 20141118
  Receipt Date: 20150625
  Transmission Date: 20150821
  Serious: Yes (Other)
  Sender: FDA-Public Use
  Company Number: US-SA-2014SA136686

PATIENT
  Age: 67 Year
  Sex: Female

DRUGS (1)
  1. AUBAGIO [Suspect]
     Active Substance: TERIFLUNOMIDE
     Indication: MULTIPLE SCLEROSIS
     Route: 048
     Dates: start: 20140917

REACTIONS (6)
  - Multiple sclerosis relapse [Unknown]
  - Walking aid user [Unknown]
  - Visual impairment [Unknown]
  - Lip pain [Unknown]
  - Glossodynia [Unknown]
  - Erythema [Unknown]

NARRATIVE: CASE EVENT DATE: 201409
